FAERS Safety Report 6696629-0 (Version None)
Quarter: 2010Q2

REPORT INFORMATION
  Report Type: 
  Country: None (occurrence: None)
  Receive Date: 20100426
  Receipt Date: 20100419
  Transmission Date: 20101027
  Serious: Yes (Other)
  Sender: FDA-Public Use
  Company Number: B0648816A

PATIENT
  Sex: Female

DRUGS (5)
  1. ARIXTRA [Suspect]
     Indication: THROMBOSIS PROPHYLAXIS
     Dosage: 2.5MG PER DAY
     Route: 058
     Dates: start: 20100326, end: 20100329
  2. PANSPORIN [Concomitant]
     Indication: INFECTION PROPHYLAXIS
  3. SOLETON [Concomitant]
     Route: 048
  4. IRZAIM [Concomitant]
     Route: 048
  5. ISALON [Concomitant]
     Route: 048

REACTIONS (2)
  - BLOOD CREATINE PHOSPHOKINASE INCREASED [None]
  - HEPATIC FUNCTION ABNORMAL [None]
